FAERS Safety Report 6511348-9 (Version None)
Quarter: 2009Q4

REPORT INFORMATION
  Report Type: 
  Country: None (occurrence: None)
  Receive Date: 20091222
  Receipt Date: 20090303
  Transmission Date: 20100525
  Serious: No
  Sender: FDA-Public Use
  Company Number: US-ASTRAZENECA-2009UW05753

PATIENT
  Sex: Female
  Weight: 64.9 kg

DRUGS (4)
  1. CRESTOR [Suspect]
     Route: 048
     Dates: start: 20090201
  2. BLOOD PRESSURE MEDICATIONS [Concomitant]
  3. ASPIRIN [Concomitant]
     Dosage: 81 MG
  4. ALLERGY SPRAY [Concomitant]

REACTIONS (3)
  - DYSPHAGIA [None]
  - LOCAL SWELLING [None]
  - MUSCULOSKELETAL PAIN [None]
